FAERS Safety Report 12740429 (Version 2)
Quarter: 2016Q4

REPORT INFORMATION
  Report Type: Report from Study
  Country: TH (occurrence: TH)
  Receive Date: 20160913
  Receipt Date: 20161011
  Transmission Date: 20170207
  Serious: Yes (Hospitalization, Other)
  Sender: FDA-Public Use
  Company Number: TH-ELI_LILLY_AND_COMPANY-TH201602007284

PATIENT
  Age: 73 Year
  Sex: Female

DRUGS (1)
  1. FORTEO [Suspect]
     Active Substance: TERIPARATIDE
     Indication: OSTEOPOROSIS
     Dosage: 20 UG, QD
     Route: 058
     Dates: start: 20160119, end: 201603

REACTIONS (11)
  - Cardiac failure [Unknown]
  - Hyponatraemia [Unknown]
  - Hyperkalaemia [Unknown]
  - Vomiting [Unknown]
  - Cardiovascular disorder [Unknown]
  - Urinary tract disorder [Unknown]
  - Mineral deficiency [Unknown]
  - Lung infection [Unknown]
  - Acute kidney injury [Recovering/Resolving]
  - Pulmonary oedema [Unknown]
  - Renal function test abnormal [Unknown]

NARRATIVE: CASE EVENT DATE: 20160213
